FAERS Safety Report 9354619 (Version 3)
Quarter: 2013Q3

REPORT INFORMATION
  Report Type: Report from Study
  Country: JP (occurrence: JP)
  Receive Date: 20130618
  Receipt Date: 20130912
  Transmission Date: 20140515
  Serious: Yes (Death, Other)
  Sender: FDA-Public Use
  Company Number: JP-OTSUKA-JP-2013-12234

PATIENT
  Age: 100 Year
  Sex: Female

DRUGS (6)
  1. SAMSCA [Suspect]
     Indication: FLUID RETENTION
     Dosage: 3.75 MG MILLIGRAM(S), QAM
     Route: 048
     Dates: start: 20121016, end: 20121023
  2. SAMSCA [Suspect]
     Dosage: 7.5 MG MILLIGRAM(S), QAM
     Route: 048
     Dates: start: 20121024, end: 20121103
  3. FRANDOL [Concomitant]
     Indication: CARDIAC FAILURE
     Dosage: 40 MG MILLIGRAM(S), DAILY DOSE
     Route: 061
     Dates: end: 20121102
  4. DIART [Concomitant]
     Indication: CARDIAC FAILURE
     Dosage: 15 MG MILLIGRAM(S), DAILY DOSE
     Route: 048
     Dates: start: 20121016, end: 20121019
  5. DIART [Concomitant]
     Dosage: 30 MG MILLIGRAM(S), DAILY DOSE
     Route: 048
     Dates: start: 20121020, end: 20121103
  6. TANATRIL [Concomitant]
     Indication: CARDIAC FAILURE
     Dosage: 2.5 MG MILLIGRAM(S), DAILY DOSE
     Route: 048
     Dates: start: 20121030, end: 20121103

REACTIONS (4)
  - Shock [Fatal]
  - Atrial tachycardia [Unknown]
  - Eating disorder [Unknown]
  - Lower gastrointestinal haemorrhage [Fatal]
